FAERS Safety Report 6524119-4 (Version None)
Quarter: 2009Q4

REPORT INFORMATION
  Report Type: 
  Country: None (occurrence: None)
  Receive Date: 20091230
  Receipt Date: 20091230
  Transmission Date: 20100525
  Serious: Yes (Other)
  Sender: FDA-Public Use
  Company Number: None

PATIENT
  Age: 59 Year
  Sex: Female
  Weight: 75.2971 kg

DRUGS (2)
  1. DICYCLOMINE [Suspect]
     Indication: MUSCLE SPASMS
     Dosage: ONE TABLET TWICE DAILY
     Dates: start: 20091105, end: 20091110
  2. DICYCLOMINE [Suspect]
     Indication: MUSCLE SPASMS
     Dosage: ONE CAPSULE 2 TO 3 TIMES DAILY
     Dates: start: 20091203, end: 20091209

REACTIONS (1)
  - ALOPECIA [None]
